FAERS Safety Report 6136022-2 (Version None)
Quarter: 2009Q1

REPORT INFORMATION
  Report Type: 
  Country: None (occurrence: None)
  Receive Date: 20090330
  Receipt Date: 20090318
  Transmission Date: 20090719
  Serious: Yes (Other)
  Sender: FDA-Public Use
  Company Number: US-JNJFOC-20090305122

PATIENT
  Sex: Male

DRUGS (2)
  1. MYLANTA ULTIMATE STRENGTH CHERRY [Suspect]
     Indication: ABDOMINAL DISCOMFORT
     Route: 048
  2. MYLANTA ULTIMATE STRENGTH CHERRY [Suspect]
     Indication: GASTROOESOPHAGEAL REFLUX DISEASE
     Dosage: DRANK FROM BOTTLE 3 TIMES A DAY
     Route: 048

REACTIONS (3)
  - INCORRECT DOSE ADMINISTERED [None]
  - LOSS OF CONSCIOUSNESS [None]
  - WRONG TECHNIQUE IN DRUG USAGE PROCESS [None]
